FAERS Safety Report 4648833-0 (Version None)
Quarter: 2005Q2

REPORT INFORMATION
  Report Type: 
  Country: None (occurrence: None)
  Receive Date: 20050429
  Receipt Date: 20050422
  Transmission Date: 20051028
  Serious: Yes (Hospitalization)
  Sender: FDA-Public Use
  Company Number: US-JNJFOC-20050406120

PATIENT
  Sex: Male

DRUGS (4)
  1. DURAGESIC [Suspect]
     Route: 062
     Dates: start: 20011201
  2. EFFEXOR [Concomitant]
     Route: 049
  3. ACIPHEX [Concomitant]
  4. ZANTAC [Concomitant]

REACTIONS (2)
  - INTESTINAL OBSTRUCTION [None]
  - POLYMYALGIA RHEUMATICA [None]
